FAERS Safety Report 21293872 (Version 1)
Quarter: 2022Q3

REPORT INFORMATION
  Report Type: Spontaneous
  Country: JP (occurrence: JP)
  Receive Date: 20220905
  Receipt Date: 20220905
  Transmission Date: 20221027
  Serious: No
  Sender: FDA-Public Use
  Company Number: JP-PADAGIS-2022PAD00287

PATIENT

DRUGS (1)
  1. MIDAZOLAM HYDROCHLORIDE [Suspect]
     Active Substance: MIDAZOLAM HYDROCHLORIDE
     Indication: Local anaesthesia
     Dosage: 3 MG
     Route: 065

REACTIONS (1)
  - Sedation complication [Unknown]
